FAERS Safety Report 12964264 (Version 1)
Quarter: 2016Q4

REPORT INFORMATION
  Report Type: Spontaneous
  Country: US (occurrence: US)
  Receive Date: 20161122
  Receipt Date: 20161122
  Transmission Date: 20170207
  Serious: No
  Sender: FDA-Public Use
  Company Number: US-PFIZER INC-2016518944

PATIENT
  Age: 47 Year
  Sex: Female
  Weight: 65.77 kg

DRUGS (2)
  1. LYRICA [Suspect]
     Active Substance: PREGABALIN
     Dosage: 300 MG, 1X/DAY
     Route: 048
  2. LYRICA [Suspect]
     Active Substance: PREGABALIN
     Indication: FIBROMYALGIA
     Dosage: 300 MG, 2X/DAY

REACTIONS (6)
  - Drug ineffective [Unknown]
  - Intentional product use issue [Unknown]
  - Hypoaesthesia [Unknown]
  - Pain [Not Recovered/Not Resolved]
  - Prescribed overdose [Unknown]
  - Paraesthesia [Unknown]
